FAERS Safety Report 11576874 (Version 1)
Quarter: 2015Q3

REPORT INFORMATION
  Report Type: Spontaneous
  Country: US (occurrence: US)
  Receive Date: 20150930
  Receipt Date: 20150930
  Transmission Date: 20151125
  Serious: No
  Sender: FDA-Public Use
  Company Number: US-BAYER-2015-426085

PATIENT
  Age: 72 Year
  Sex: Female

DRUGS (2)
  1. ENSURE [MINERALS NOS,VITAMINS NOS] [Concomitant]
     Dosage: 1 DF, BID
     Route: 048
  2. OXYTROL FOR WOMEN [Suspect]
     Active Substance: OXYBUTYNIN
     Indication: URINARY INCONTINENCE
     Dosage: 1 DF EVERY 4 DAYS
     Route: 061
     Dates: start: 201508

REACTIONS (4)
  - Decreased appetite [Not Recovered/Not Resolved]
  - Skin discolouration [Not Recovered/Not Resolved]
  - Infrequent bowel movements [None]
  - Somnolence [Not Recovered/Not Resolved]

NARRATIVE: CASE EVENT DATE: 2015
